FAERS Safety Report 7978560-3 (Version None)
Quarter: 2011Q4

REPORT INFORMATION
  Report Type: 
  Country: None (occurrence: None)
  Receive Date: 20111129
  Receipt Date: 20110919
  Transmission Date: 20120403
  Serious: No
  Sender: FDA-Public Use
  Company Number: PHEH2011US04619

PATIENT
  Sex: Male

DRUGS (14)
  1. FISH OIL (FISH OIL) [Concomitant]
  2. ACTOS (PIOGLITAZONE, PIOGLITAZONE HYDROCHLORIDE) [Concomitant]
  3. GLUCOSAMINE /CHONDROITIN /MSM (CHONDROITIN, GLUCOSAMINE, METHYLSULFONY [Concomitant]
  4. AFINITOR [Suspect]
     Dosage: 5 MG, UNK, ORAL 10 MG, UNK, ORAL
     Route: 048
     Dates: start: 20110901
  5. COZAAR [Concomitant]
  6. SIMVASTATIN [Concomitant]
  7. GLYBURIDE [Concomitant]
  8. VITAMIN D [Concomitant]
  9. CHLORELLA (CHLORELLA VULGARIS) [Concomitant]
  10. ASPIRIN [Concomitant]
  11. IMMUNE (NO INGREDIENTS/SUBSTANCES) [Concomitant]
  12. OMEPRAZOLE [Concomitant]
  13. CIALIS [Concomitant]
  14. MULTIVITAMIN [Concomitant]

REACTIONS (4)
  - COUGH [None]
  - FATIGUE [None]
  - STOMATITIS [None]
  - DYSGEUSIA [None]
